FAERS Safety Report 5378785-X (Version None)
Quarter: 2007Q3

REPORT INFORMATION
  Report Type: 
  Country: None (occurrence: None)
  Receive Date: 20070705
  Receipt Date: 20070625
  Transmission Date: 20080115
  Serious: Yes (Death, Hospitalization)
  Sender: FDA-Public Use
  Company Number: IT-ELI_LILLY_AND_COMPANY-IT200706003693

PATIENT
  Age: 72 Year
  Sex: Female

DRUGS (10)
  1. ALIMTA [Suspect]
     Indication: PLEURAL MESOTHELIOMA
     Dosage: 700 MG, OTHER
     Route: 042
     Dates: start: 20070329, end: 20070329
  2. ALIMTA [Suspect]
     Dosage: 500 MG, OTHER
     Route: 042
     Dates: start: 20070420, end: 20070518
  3. CISPLATIN [Concomitant]
     Indication: PLEURAL MESOTHELIOMA
     Dosage: 100 MG, OTHER
     Route: 042
     Dates: start: 20070329, end: 20070329
  4. CISPLATIN [Concomitant]
     Dosage: 75 MG, OTHER
     Route: 042
     Dates: start: 20070420, end: 20070518
  5. FOLIC ACID [Concomitant]
     Indication: PREMEDICATION
     Dosage: 400 UG, DAILY (1/D)
  6. VITAMIN B-12 [Concomitant]
     Indication: PREMEDICATION
     Dosage: 1000 UG, OTHER
  7. DELTACORTENE [Concomitant]
     Indication: PREMEDICATION
  8. NAVOBAN [Concomitant]
     Indication: ANTIEMETIC SUPPORTIVE CARE
  9. INTRAFER [Concomitant]
  10. POTASSIUM CHLORIDE [Concomitant]

REACTIONS (6)
  - BONE MARROW FAILURE [None]
  - DYSPHAGIA [None]
  - LIP OEDEMA [None]
  - MUCOSAL INFLAMMATION [None]
  - PANCYTOPENIA [None]
  - PYREXIA [None]
